FAERS Safety Report 13805701 (Version 1)
Quarter: 2017Q3

REPORT INFORMATION
  Report Type: Spontaneous
  Country: US (occurrence: US)
  Receive Date: 20170728
  Receipt Date: 20170728
  Transmission Date: 20171127
  Serious: No
  Sender: FDA-Public Use
  Company Number: US-BIOGEN-2017BI00438007

PATIENT
  Age: 35 Year
  Sex: Female

DRUGS (1)
  1. TYSABRI [Suspect]
     Active Substance: NATALIZUMAB
     Indication: MULTIPLE SCLEROSIS
     Route: 065

REACTIONS (7)
  - Cough [Unknown]
  - Pain [Unknown]
  - Dry mouth [Unknown]
  - Pruritus [Unknown]
  - Toothache [Unknown]
  - Weight increased [Unknown]
  - Oral herpes [Unknown]
